FAERS Safety Report 14203075 (Version 2)
Quarter: 2018Q2

REPORT INFORMATION
  Report Type: Spontaneous
  Country: US (occurrence: US)
  Receive Date: 20171120
  Receipt Date: 20180601
  Transmission Date: 20180711
  Serious: No
  Sender: FDA-Public Use
  Company Number: US-ASTRAZENECA-2017SF17092

PATIENT
  Sex: Female

DRUGS (5)
  1. TUDORZA PRESSAIR [Suspect]
     Active Substance: ACLIDINIUM BROMIDE
     Dosage: 400.0UG UNKNOWN
     Route: 055
  2. PREDNISONE. [Concomitant]
     Active Substance: PREDNISONE
  3. SYMBICORT [Suspect]
     Active Substance: BUDESONIDE\FORMOTEROL FUMARATE DIHYDRATE
     Dosage: TWO TIMES A DAY
     Route: 055
  4. LIPITOR [Concomitant]
     Active Substance: ATORVASTATIN CALCIUM
  5. SINGULAIR [Concomitant]
     Active Substance: MONTELUKAST SODIUM

REACTIONS (8)
  - Intentional product misuse [Unknown]
  - Device malfunction [Unknown]
  - Wheezing [Unknown]
  - Malaise [Unknown]
  - Chronic obstructive pulmonary disease [Unknown]
  - Drug dose omission [Unknown]
  - Dyspnoea [Unknown]
  - Frustration tolerance decreased [Unknown]
